FAERS Safety Report 11844387 (Version 4)
Quarter: 2016Q1

REPORT INFORMATION
  Report Type: Spontaneous
  Country: US (occurrence: US)
  Receive Date: 20151217
  Receipt Date: 20160229
  Transmission Date: 20160526
  Serious: Yes (Other)
  Sender: FDA-Public Use
  Company Number: PHEH2015US025979

PATIENT
  Age: 60 Year
  Sex: Male

DRUGS (1)
  1. TASIGNA [Suspect]
     Active Substance: NILOTINIB
     Indication: CHRONIC MYELOID LEUKAEMIA
     Dosage: 400 MG, BID (TWO CAPSULES IN THE AFTERNOON AND TWO CAPSULES AT NIGHT)
     Route: 065

REACTIONS (5)
  - Chronic myeloid leukaemia recurrent [Unknown]
  - Chronic myeloid leukaemia [Not Recovered/Not Resolved]
  - Incorrect product storage [Unknown]
  - Malignant neoplasm progression [Not Recovered/Not Resolved]
  - Dyspepsia [Unknown]

NARRATIVE: CASE EVENT DATE: 20151125
